FAERS Safety Report 5309724-5 (Version None)
Quarter: 2007Q2

REPORT INFORMATION
  Report Type: 
  Country: None (occurrence: None)
  Receive Date: 20070427
  Receipt Date: 20061130
  Transmission Date: 20071010
  Serious: No
  Sender: FDA-Public Use
  Company Number: US-GLAXOSMITHKLINE-A0629686A

PATIENT
  Age: 25 Year
  Sex: Female

DRUGS (4)
  1. ZOFRAN [Suspect]
     Dosage: 4MG PER DAY
     Route: 042
     Dates: start: 20061130
  2. PITOCIN [Concomitant]
  3. NARCAN [Concomitant]
  4. LACTATED RINGER'S [Concomitant]

REACTIONS (1)
  - INFUSION SITE REACTION [None]
